FAERS Safety Report 15351785 (Version 1)
Quarter: 2018Q3

REPORT INFORMATION
  Report Type: Spontaneous
  Country: US (occurrence: US)
  Receive Date: 20180905
  Receipt Date: 20180905
  Transmission Date: 20181010
  Serious: No
  Sender: FDA-Public Use
  Company Number: US-SA-2018SA244361

PATIENT
  Sex: Female

DRUGS (20)
  1. GABAPENTIN. [Concomitant]
     Active Substance: GABAPENTIN
  2. ALENDRONATE [Concomitant]
     Active Substance: ALENDRONATE SODIUM
  3. KLOR?CON [Concomitant]
     Active Substance: POTASSIUM CHLORIDE
  4. SIMVASTATIN. [Concomitant]
     Active Substance: SIMVASTATIN
  5. LEVOTHYROXIN [Concomitant]
     Active Substance: LEVOTHYROXINE
  6. TIZANIDINE. [Concomitant]
     Active Substance: TIZANIDINE
  7. LISINOPRIL. [Concomitant]
     Active Substance: LISINOPRIL
  8. OXYBUTYNIN CHLORIDE. [Concomitant]
     Active Substance: OXYBUTYNIN CHLORIDE
  9. AMLODIPINE [Concomitant]
     Active Substance: AMLODIPINE BESYLATE
  10. NAPROXEN. [Concomitant]
     Active Substance: NAPROXEN
  11. ACETAMINOPHEN. [Concomitant]
     Active Substance: ACETAMINOPHEN
  12. NORTRIPTYLIN [Concomitant]
     Active Substance: NORTRIPTYLINE
  13. ASPIRINE 325 MG [Concomitant]
  14. AUBAGIO [Suspect]
     Active Substance: TERIFLUNOMIDE
     Dosage: UNK UNK, QD
     Route: 048
     Dates: start: 20171002
  15. IBUPROFEN. [Concomitant]
     Active Substance: IBUPROFEN
  16. VITAMIN D [Concomitant]
     Active Substance: CHOLECALCIFEROL
  17. FUROSEMIDE. [Concomitant]
     Active Substance: FUROSEMIDE
  18. OMEPRAZOLE. [Concomitant]
     Active Substance: OMEPRAZOLE
  19. ATENOLOL. [Concomitant]
     Active Substance: ATENOLOL
  20. OXYBUTYNIN. [Concomitant]
     Active Substance: OXYBUTYNIN CHLORIDE

REACTIONS (3)
  - Ankle fracture [Not Recovered/Not Resolved]
  - Drug ineffective [Unknown]
  - Fall [Not Recovered/Not Resolved]
